FAERS Safety Report 6739916-X (Version None)
Quarter: 2010Q2

REPORT INFORMATION
  Report Type: 
  Country: None (occurrence: None)
  Receive Date: 20100525
  Receipt Date: 20100512
  Transmission Date: 20101027
  Serious: Yes (Death, Life-Threatening, Hospitalization)
  Sender: FDA-Public Use
  Company Number: JP-PFIZER INC-2010021035

PATIENT
  Age: 61 Year
  Sex: Male
  Weight: 48.3 kg

DRUGS (1)
  1. SUNITINIB MALATE [Suspect]
     Indication: RENAL CELL CARCINOMA
     Dosage: 25 MG, 1X/DAY
     Route: 048
     Dates: start: 20090525, end: 20091013

REACTIONS (5)
  - DECREASED APPETITE [None]
  - DISEASE PROGRESSION [None]
  - PLATELET COUNT DECREASED [None]
  - RENAL CELL CARCINOMA [None]
  - VOMITING [None]
